FAERS Safety Report 15279644 (Version 1)
Quarter: 2018Q3

REPORT INFORMATION
  Report Type: Spontaneous
  Country: US (occurrence: US)
  Receive Date: 20180815
  Receipt Date: 20180815
  Transmission Date: 20181010
  Serious: Yes (Other)
  Sender: FDA-Public Use
  Company Number: US-PFIZER INC-2018327692

PATIENT
  Age: 61 Year
  Sex: Female
  Weight: 99.79 kg

DRUGS (3)
  1. GABAPENTIN. [Concomitant]
     Active Substance: GABAPENTIN
     Dosage: 1200 MG, 3X/DAY
  2. PERCOCET [Concomitant]
     Active Substance: ACETAMINOPHEN\OXYCODONE HYDROCHLORIDE
  3. LYRICA [Suspect]
     Active Substance: PREGABALIN
     Indication: FIBROMYALGIA
     Dosage: UNKNOWN
     Dates: start: 201310, end: 201311

REACTIONS (3)
  - Memory impairment [Unknown]
  - Sinusitis [Recovered/Resolved]
  - Sinus congestion [Unknown]

NARRATIVE: CASE EVENT DATE: 201310
